FAERS Safety Report 16710991 (Version 1)
Quarter: 2019Q4

REPORT INFORMATION
  Report Type: Spontaneous
  Country: US (occurrence: US)
  Receive Date: 20190816
  Receipt Date: 20190816
  Transmission Date: 20200122
  Serious: Yes (Hospitalization)
  Sender: FDA-Public Use
  Company Number: None

PATIENT
  Age: 61 Year
  Sex: Female

DRUGS (14)
  1. DULOXETINE CAP 60 MG [Concomitant]
  2. ESOMEPRAZOLE CAP 49.3 MG [Concomitant]
  3. GABAPENTIN CAP 300 MG [Concomitant]
  4. VITAMIN D3 CAP 400 UNIT [Concomitant]
  5. TYLENOL TAB 500 MG [Concomitant]
  6. LEVEMIR INJ FLEXTOUCH [Concomitant]
  7. TYKERB [Suspect]
     Active Substance: LAPATINIB DITOSYLATE
     Indication: BREAST CANCER FEMALE
     Route: 048
     Dates: start: 20190628, end: 20190725
  8. ALPRAZOLAM TAB 2 MG [Concomitant]
  9. FUROSEMIDE TAB 40 MG [Concomitant]
  10. KLOR-CON M20 TAB 20 MEQ ER [Concomitant]
  11. ENALAPRIL TAB 2.5 MG [Concomitant]
  12. QUETIAPINE TAB 100 MG [Concomitant]
  13. SPIRONOLACT TAB 25 MG [Concomitant]
  14. CARVEDILOL TAB 6.25 MG [Concomitant]

REACTIONS (6)
  - Lower limb fracture [None]
  - Spinal disorder [None]
  - Hypoaesthesia [None]
  - Faeces soft [None]
  - Neoplasm [None]
  - Nerve compression [None]
